FAERS Safety Report 21898377 (Version 2)
Quarter: 2023Q1

REPORT INFORMATION
  Report Type: Spontaneous
  Country: JP (occurrence: JP)
  Receive Date: 20230123
  Receipt Date: 20230125
  Transmission Date: 20230417
  Serious: Yes (Hospitalization, Other)
  Sender: FDA-Public Use
  Company Number: JP-ONO-2023JP001241

PATIENT
  Age: 60 Year
  Sex: Male
  Weight: 36.4 kg

DRUGS (24)
  1. OPDIVO [Suspect]
     Active Substance: NIVOLUMAB
     Indication: Gastric cancer
     Dosage: 240 MG
     Route: 042
     Dates: start: 20220819, end: 20220916
  2. ANAMORELIN HYDROCHLORIDE [Suspect]
     Active Substance: ANAMORELIN HYDROCHLORIDE
     Indication: Cachexia
     Dosage: 100 MG, EVERYDAY
     Route: 048
     Dates: start: 20211018
  3. DECADRON [Concomitant]
     Active Substance: DEXAMETHASONE
     Indication: Product used for unknown indication
     Dosage: 6.6 MG, EVERYDAY
     Dates: end: 20220729
  4. OXALIPLATIN [Concomitant]
     Active Substance: OXALIPLATIN
     Indication: Product used for unknown indication
     Dosage: 100 MG
     Dates: start: 20211117, end: 20211117
  5. TS-1 [Concomitant]
     Active Substance: GIMERACIL\OTERACIL\TEGAFUR
     Indication: Product used for unknown indication
     Dosage: 60 MG
     Dates: end: 20211117
  6. CYRAMZA [Concomitant]
     Active Substance: RAMUCIRUMAB
     Indication: Product used for unknown indication
     Dosage: 360 MG
     Dates: start: 20211208, end: 20211222
  7. CYRAMZA [Concomitant]
     Active Substance: RAMUCIRUMAB
     Dosage: 350 MG
     Dates: start: 20220107, end: 20220729
  8. ABRAXANE [Concomitant]
     Active Substance: PACLITAXEL
     Indication: Product used for unknown indication
     Dosage: 100 MG
     Dates: start: 20211208, end: 20211208
  9. ABRAXANE [Concomitant]
     Active Substance: PACLITAXEL
     Dosage: 80 MG
     Dates: start: 20220107, end: 20220729
  10. POTASSIUM ASPARTATE [Concomitant]
     Active Substance: POTASSIUM ASPARTATE
     Indication: Product used for unknown indication
     Dosage: 1800 MG, EVERYDAY
     Dates: end: 20220331
  11. REBAMIPIDE [Concomitant]
     Active Substance: REBAMIPIDE
     Indication: Product used for unknown indication
     Dosage: 300 MG, EVERYDAY
     Dates: end: 20211027
  12. VONOPRAZAN FUMARATE [Concomitant]
     Active Substance: VONOPRAZAN FUMARATE
     Indication: Product used for unknown indication
     Dosage: 20 MG, EVERYDAY
  13. MIYA-BM [Concomitant]
     Active Substance: CLOSTRIDIUM BUTYRICUM SPORES STRAIN M-55
     Indication: Product used for unknown indication
     Dosage: 120 MG, EVERYDAY
     Route: 048
     Dates: end: 20220303
  14. SODIUM CHLORIDE [Concomitant]
     Active Substance: SODIUM CHLORIDE
     Indication: Product used for unknown indication
     Dosage: 6 G, EVERYDAY
     Dates: end: 20211209
  15. SODIUM CHLORIDE [Concomitant]
     Active Substance: SODIUM CHLORIDE
     Dosage: 3 G, EVERYDAY
     Dates: start: 20220414, end: 20220728
  16. ECABET SODIUM [Concomitant]
     Active Substance: ECABET SODIUM
     Indication: Product used for unknown indication
     Dosage: 3 G, EVERYDAY
     Dates: end: 20211027
  17. ACETAMINOPHEN [Concomitant]
     Active Substance: ACETAMINOPHEN
     Indication: Product used for unknown indication
     Dosage: 1000 MG, EVERYDAY
     Dates: end: 20211027
  18. ALOXI [Concomitant]
     Active Substance: PALONOSETRON HYDROCHLORIDE
     Indication: Product used for unknown indication
     Dosage: 0.75 MG, EVERYDAY
     Route: 042
     Dates: end: 20211117
  19. POLARAMINE [Concomitant]
     Active Substance: DEXCHLORPHENIRAMINE MALEATE
     Indication: Product used for unknown indication
     Dosage: 5 MG, EVERYDAY
     Dates: start: 20211208, end: 20220729
  20. GRANISETRON [Concomitant]
     Active Substance: GRANISETRON
     Indication: Product used for unknown indication
     Dosage: 3 MG, EVERYDAY
     Route: 042
     Dates: start: 20211208, end: 20220729
  21. SPIRONOLACTONE [Concomitant]
     Active Substance: SPIRONOLACTONE
     Indication: Product used for unknown indication
     Dosage: 50 MG, EVERYDAY
     Dates: start: 20220408, end: 20220505
  22. ALLOID G [Concomitant]
     Active Substance: SODIUM ALGINATE
     Indication: Product used for unknown indication
     Dosage: 60 MILLILITER, EVERYDAY SOLUTION (EXCEPT SYRUP)
     Route: 048
     Dates: start: 20220425, end: 20220728
  23. CORTRIL [Concomitant]
     Active Substance: HYDROCORTISONE
     Indication: Product used for unknown indication
     Dosage: 25 MG, EVERYDAY
     Dates: start: 20220708, end: 20221006
  24. CORTRIL [Concomitant]
     Active Substance: HYDROCORTISONE
     Dosage: 15 MG, EVERYDAY
     Dates: start: 20221015

REACTIONS (3)
  - Bacteraemia [Recovering/Resolving]
  - Thyroxine free decreased [Recovering/Resolving]
  - Hypopituitarism [Recovering/Resolving]

NARRATIVE: CASE EVENT DATE: 20220916
